FAERS Safety Report 5531505-8 (Version None)
Quarter: 2007Q4

REPORT INFORMATION
  Report Type: 
  Country: None (occurrence: None)
  Receive Date: 20071128
  Receipt Date: 20071128
  Transmission Date: 20080405
  Serious: Yes (Other)
  Sender: FDA-Public Use
  Company Number: None

PATIENT
  Age: 58 Year
  Sex: Male
  Weight: 95.2554 kg

DRUGS (1)
  1. CHANTIX [Suspect]
     Indication: SMOKING CESSATION THERAPY
     Dosage: 1 MG. BID PO
     Route: 048
     Dates: start: 20070824, end: 20070917

REACTIONS (4)
  - BLISTER [None]
  - ERYTHEMA [None]
  - NO THERAPEUTIC RESPONSE [None]
  - SKIN REACTION [None]
